FAERS Safety Report 10255520 (Version 1)
Quarter: 2014Q2

REPORT INFORMATION
  Report Type: Spontaneous
  Country: US (occurrence: US)
  Receive Date: 20140624
  Receipt Date: 20140624
  Transmission Date: 20141212
  Serious: No
  Sender: FDA-Public Use
  Company Number: US-B.I. PHARMACEUTICALS,INC./RIDGEFIELD-2014-BI-27218BP

PATIENT
  Age: 61 Year
  Sex: Female
  Weight: 49 kg

DRUGS (4)
  1. SPIRIVA [Suspect]
     Indication: CHRONIC OBSTRUCTIVE PULMONARY DISEASE
     Dosage: 18 MCG
     Route: 055
     Dates: start: 201302
  2. XANAX [Concomitant]
     Indication: ANXIETY
     Route: 048
     Dates: start: 2003
  3. FLAX SEED OIL [Concomitant]
     Indication: BLOOD CHOLESTEROL INCREASED
     Route: 048
     Dates: start: 2011
  4. FISH OIL [Concomitant]
     Indication: BLOOD CHOLESTEROL INCREASED
     Route: 048
     Dates: start: 2011

REACTIONS (2)
  - Dyspnoea exertional [Not Recovered/Not Resolved]
  - Dry throat [Not Recovered/Not Resolved]
